FAERS Safety Report 6929994-7 (Version None)
Quarter: 2010Q3

REPORT INFORMATION
  Report Type: 
  Country: None (occurrence: None)
  Receive Date: 20100818
  Receipt Date: 20100806
  Transmission Date: 20110219
  Serious: Yes (Death)
  Sender: FDA-Public Use
  Company Number: JP-PFIZER INC-2010099314

PATIENT
  Age: 62 Year
  Sex: Female

DRUGS (4)
  1. LYRICA [Suspect]
     Indication: POST HERPETIC NEURALGIA
     Dosage: 25 MG, 1X/DAY
     Route: 048
     Dates: start: 20100731
  2. TAKEPRON [Concomitant]
     Dosage: UNK
     Route: 048
  3. METHYCOBAL [Concomitant]
     Dosage: UNK
  4. DEPAS [Concomitant]
     Dosage: UNK

REACTIONS (1)
  - CARDIAC FAILURE ACUTE [None]
